FAERS Safety Report 10757892 (Version 1)
Quarter: 2015Q1

REPORT INFORMATION
  Report Type: Report from Study
  Country: TR (occurrence: TR)
  Receive Date: 20150203
  Receipt Date: 20150203
  Transmission Date: 20150721
  Serious: Yes (Hospitalization)
  Sender: FDA-Public Use
  Company Number: TR-ROCHE-GNE293093

PATIENT
  Age: 55 Year
  Sex: Female

DRUGS (1)
  1. BLINDED RANIBIZUMAB [Suspect]
     Active Substance: RANIBIZUMAB
     Indication: DIABETIC RETINAL OEDEMA
     Dosage: DATE OF LAST DOSE PRIOR TO SAE: 06/JUL/2009
     Route: 050
     Dates: start: 20081219

REACTIONS (3)
  - Disease progression [Recovered/Resolved]
  - Diabetes mellitus inadequate control [Recovered/Resolved]
  - Pulmonary embolism [Recovered/Resolved]

NARRATIVE: CASE EVENT DATE: 20090906
